FAERS Safety Report 22058902 (Version 1)
Quarter: 2023Q1

REPORT INFORMATION
  Report Type: Report from Study
  Country: BR (occurrence: BR)
  Receive Date: 20230303
  Receipt Date: 20230303
  Transmission Date: 20230418
  Serious: Yes (Other)
  Sender: FDA-Public Use
  Company Number: BR-JNJFOC-20211149267

PATIENT
  Age: 37 Year
  Sex: Female
  Weight: 87 kg

DRUGS (1)
  1. REMICADE [Suspect]
     Active Substance: INFLIXIMAB
     Indication: Ankylosing spondylitis
     Dates: start: 20180629, end: 2020

REACTIONS (2)
  - Arrhythmia [Unknown]
  - Hypersensitivity [Unknown]
